FAERS Safety Report 6197420-4 (Version None)
Quarter: 2009Q2

REPORT INFORMATION
  Report Type: 
  Country: None (occurrence: None)
  Receive Date: 20090521
  Receipt Date: 20090519
  Transmission Date: 20091009
  Serious: Yes (Disabling, Other)
  Sender: FDA-Public Use
  Company Number: US-ALLERGAN-0905258US

PATIENT
  Age: 50 Year
  Sex: Female

DRUGS (3)
  1. RESTASIS [Suspect]
     Indication: DRY EYE
     Dosage: 1 GTT, Q12H
     Route: 047
     Dates: start: 20081201, end: 20090416
  2. RESTASIS [Suspect]
     Dosage: UNK, UNKNOWN
     Route: 047
  3. MULTI-VITAMIN [Concomitant]

REACTIONS (1)
  - PLANTAR FASCIITIS [None]
